FAERS Safety Report 17663409 (Version 1)
Quarter: 2020Q2

REPORT INFORMATION
  Report Type: Spontaneous
  Country: RO (occurrence: RO)
  Receive Date: 20200413
  Receipt Date: 20200413
  Transmission Date: 20200713
  Serious: Yes (Other)
  Sender: FDA-Public Use
  Company Number: RO-BAXTER-2020BAX007904

PATIENT
  Age: 44 Year
  Sex: Female
  Weight: 125 kg

DRUGS (2)
  1. METOPROLOL. [Concomitant]
     Active Substance: METOPROLOL
     Indication: TACHYCARDIA
     Route: 042
  2. DOXIL [Suspect]
     Active Substance: DOXORUBICIN HYDROCHLORIDE
     Indication: OVARIAN CANCER STAGE IV
     Dosage: STOPPED
     Route: 042
     Dates: start: 201912

REACTIONS (6)
  - Paronychia [Not Recovered/Not Resolved]
  - Skin lesion [Not Recovered/Not Resolved]
  - Anaemia [Unknown]
  - Dermatitis psoriasiform [Not Recovered/Not Resolved]
  - Acute kidney injury [Unknown]
  - Dermatitis [Not Recovered/Not Resolved]
